FAERS Safety Report 13869351 (Version 2)
Quarter: 2017Q4

REPORT INFORMATION
  Report Type: Spontaneous
  Country: JP (occurrence: JP)
  Receive Date: 20170815
  Receipt Date: 20171120
  Transmission Date: 20180320
  Serious: Yes (Other)
  Sender: FDA-Public Use
  Company Number: JP-PFIZER INC-2017351186

PATIENT
  Age: 8 Decade
  Sex: Male

DRUGS (15)
  1. PANTOSIN [Concomitant]
     Active Substance: PANTETHINE
     Dosage: 0.5 G, 3X/DAY
     Route: 048
  2. HERBESSER [Concomitant]
     Active Substance: DILTIAZEM HYDROCHLORIDE
     Dosage: 100 MG, 2X/DAY
     Route: 048
  3. KETAS [Concomitant]
     Active Substance: IBUDILAST
     Dosage: UNK UNK, 3X/DAY
     Route: 048
  4. BAYASPIRIN [Concomitant]
     Active Substance: ASPIRIN
     Dosage: UNK UNK, 1X/DAY
     Route: 048
  5. NITRODERM [Concomitant]
     Active Substance: NITROGLYCERIN
     Dosage: 25 MG, 1X/DAY
     Route: 062
  6. SENNOSIDE /00571901/ [Concomitant]
     Active Substance: SENNOSIDES A AND B
     Dosage: 24 MG, 1X/DAY
     Route: 048
  7. LYRICA [Suspect]
     Active Substance: PREGABALIN
     Dosage: 25 MG, 2X/DAY
     Route: 048
     Dates: start: 20170725, end: 20170811
  8. METHYCOBAL [Concomitant]
     Active Substance: METHYLCOBALAMIN
     Dosage: 500 UG, 3X/DAY
     Route: 048
  9. OPALMON [Concomitant]
     Active Substance: LIMAPROST
     Dosage: 5 UG, 3X/DAY
     Route: 048
  10. KERLONG [Concomitant]
     Active Substance: BETAXOLOL HYDROCHLORIDE
     Dosage: 2.5 MG, 1X/DAY
     Route: 048
  11. NICORANDIL [Concomitant]
     Active Substance: NICORANDIL
     Dosage: 5 MG, 3X/DAY
     Route: 048
  12. DILTIAZEM. [Concomitant]
     Active Substance: DILTIAZEM
  13. REBAMIPIDE [Concomitant]
     Active Substance: REBAMIPIDE
     Dosage: UNK UNK, 3X/DAY
     Route: 048
  14. ZOLPIDEM [Concomitant]
     Active Substance: ZOLPIDEM\ZOLPIDEM TARTRATE
     Dosage: UNK
     Route: 048
  15. MAGNESIUM OXIDE. [Concomitant]
     Active Substance: MAGNESIUM OXIDE
     Dosage: 0.5 G, 3X/DAY
     Route: 048

REACTIONS (2)
  - Ileus [Recovered/Resolved]
  - Drug prescribing error [Unknown]

NARRATIVE: CASE EVENT DATE: 20170811
